FAERS Safety Report 20814802 (Version 3)
Quarter: 2022Q2

REPORT INFORMATION
  Report Type: Report from Study
  Country: ES (occurrence: ES)
  Receive Date: 20220511
  Receipt Date: 20220517
  Transmission Date: 20220721
  Serious: Yes (Other)
  Sender: FDA-Public Use
  Company Number: ES-ABBVIE-22K-144-4376850-00

PATIENT
  Age: 84 Year
  Sex: Male

DRUGS (3)
  1. CARBIDOPA\LEVODOPA [Suspect]
     Active Substance: CARBIDOPA\LEVODOPA
     Indication: Parkinson^s disease
     Route: 050
     Dates: start: 20210714, end: 20220512
  2. CARBIDOPA\LEVODOPA [Suspect]
     Active Substance: CARBIDOPA\LEVODOPA
     Dosage: DECREASE CONTINUOUS DOSE TO 2.9ML/H AND MORNING DOSE TO 13ML
     Route: 050
     Dates: start: 20220512
  3. QUETIAPINE [Suspect]
     Active Substance: QUETIAPINE
     Indication: Parkinson^s disease
     Route: 048

REACTIONS (11)
  - Aggression [Recovered/Resolved with Sequelae]
  - Disorientation [Recovered/Resolved with Sequelae]
  - Aggression [Recovered/Resolved]
  - Screaming [Unknown]
  - Restlessness [Recovered/Resolved]
  - Off label use [Unknown]
  - Device breakage [Unknown]
  - Device dislocation [Recovered/Resolved]
  - Device occlusion [Not Recovered/Not Resolved]
  - Stoma site pain [Recovered/Resolved]
  - Dyskinesia [Recovering/Resolving]

NARRATIVE: CASE EVENT DATE: 20220301
